FAERS Safety Report 9274406 (Version 2)
Quarter: 2013Q4

REPORT INFORMATION
  Report Type: Spontaneous
  Country: US (occurrence: US)
  Receive Date: 20130506
  Receipt Date: 20131122
  Transmission Date: 20140711
  Serious: Yes (Other)
  Sender: FDA-Public Use
  Company Number: CHPA2013US007401

PATIENT
  Age: 65 Year
  Sex: Female

DRUGS (4)
  1. CONTROL PLP [Suspect]
     Indication: SMOKING CESSATION THERAPY
     Dosage: 21 MG, QD
     Route: 062
     Dates: start: 201304, end: 20130425
  2. LORAZEPAM [Concomitant]
     Dosage: UNK, UNK
  3. SEROQUEL [Concomitant]
     Dosage: UNK, UNK
  4. ABILIFY [Concomitant]
     Dosage: UNK, UNK

REACTIONS (3)
  - Bipolar I disorder [Recovered/Resolved]
  - Treatment noncompliance [Unknown]
  - Overdose [Unknown]
